FAERS Safety Report 9533547 (Version 1)
Quarter: 2013Q1

REPORT INFORMATION
  Report Type: Spontaneous
  Country: US (occurrence: None)
  Receive Date: 20130318
  Receipt Date: 20130318
  Transmission Date: 20140127
  Serious: Yes (Other)
  Sender: FDA-Public Use
  Company Number: 2012SP025754

PATIENT
  Age: 38 Year
  Sex: Male
  Weight: 90.7 kg

DRUGS (1)
  1. SYLATRON [Suspect]
     Indication: MALIGNANT MELANOMA
     Route: 058
     Dates: start: 20111019, end: 20120410

REACTIONS (2)
  - Injection site cellulitis [None]
  - Injection site pain [None]
